FAERS Safety Report 17128404 (Version 1)
Quarter: 2019Q4

REPORT INFORMATION
  Report Type: Spontaneous
  Country: US (occurrence: US)
  Receive Date: 20191206
  Receipt Date: 20191206
  Transmission Date: 20200122
  Serious: Yes (Other)
  Sender: FDA-Public Use
  Company Number: None

PATIENT
  Age: 75 Year
  Sex: Male
  Weight: 85.7 kg

DRUGS (1)
  1. KYMRIAH [Suspect]
     Active Substance: TISAGENLECLEUCEL
     Indication: NON-HODGKIN^S LYMPHOMA
     Dosage: ?          OTHER FREQUENCY:1 TIME;?DOSE OR AMOUNT  2.7E8 TOT  TOTAL?
     Route: 042
     Dates: start: 20191111, end: 20191111

REACTIONS (2)
  - Cytokine release syndrome [None]
  - Lymphocyte adoptive therapy [None]

NARRATIVE: CASE EVENT DATE: 20191115
